FAERS Safety Report 15289558 (Version 3)
Quarter: 2018Q3

REPORT INFORMATION
  Report Type: Report from Study
  Country: US (occurrence: US)
  Receive Date: 20180817
  Receipt Date: 20180905
  Transmission Date: 20181010
  Serious: Yes (Death)
  Sender: FDA-Public Use
  Company Number: US-PFIZER INC-2018331613

PATIENT
  Age: 14 Year
  Sex: Female

DRUGS (2)
  1. PROPOFOL. [Suspect]
     Active Substance: PROPOFOL
     Dosage: UNK
  2. KETAMINE HCL [Suspect]
     Active Substance: KETAMINE HYDROCHLORIDE
     Dosage: UNK

REACTIONS (9)
  - Toxicity to various agents [Fatal]
  - Myocardial ischaemia [Fatal]
  - Seizure [Fatal]
  - Respiratory depression [Fatal]
  - Anion gap [Fatal]
  - Metabolic acidosis [Fatal]
  - Bradycardia [Fatal]
  - Myocardial infarction [Fatal]
  - Hypotension [Fatal]
